FAERS Safety Report 4923223-1 (Version None)
Quarter: 2006Q1

REPORT INFORMATION
  Report Type: 
  Country: None (occurrence: None)
  Receive Date: 20060127
  Receipt Date: 20051214
  Transmission Date: 20060701
  Serious: Yes (Other)
  Sender: FDA-Public Use
  Company Number: 2005141235

PATIENT
  Age: 43 Year
  Sex: Male
  Weight: 101.1521 kg

DRUGS (9)
  1. LYRICA [Suspect]
     Indication: DIABETIC NEUROPATHY
     Dosage: 75 MG 1 IN 1D)
     Dates: start: 20051003
  2. LYRICA [Suspect]
     Indication: NEURALGIA
     Dosage: 75 MG 1 IN 1D)
     Dates: start: 20051003
  3. PRILOSEC [Concomitant]
  4. PROMETHAZINE [Concomitant]
  5. KLONOPIN [Concomitant]
  6. METFORMIN [Concomitant]
  7. METHADONE [Concomitant]
  8. GEMFIBROZIL [Concomitant]
  9. GLYBURIDE [Concomitant]

REACTIONS (6)
  - ASTHENIA [None]
  - BLOOD GLUCOSE INCREASED [None]
  - DRY EYE [None]
  - DRY MOUTH [None]
  - LETHARGY [None]
  - SOMNOLENCE [None]
